FAERS Safety Report 6678831-7 (Version None)
Quarter: 2010Q2

REPORT INFORMATION
  Report Type: 
  Country: None (occurrence: None)
  Receive Date: 20100413
  Receipt Date: 20091203
  Transmission Date: 20101027
  Serious: Yes (Hospitalization, Other)
  Sender: FDA-Public Use
  Company Number: GR-BAYER-201021278GPV

PATIENT
  Age: 77 Year
  Sex: Male

DRUGS (3)
  1. NEXAVAR [Suspect]
     Indication: HEPATIC NEOPLASM MALIGNANT
     Dosage: UNIT DOSE: 400 MG
  2. ACETYLSALICYLIC ACID [Concomitant]
     Indication: EPILEPSY
     Dosage: UNIT DOSE: 100 MG
  3. VALPROIC ACID [Concomitant]
     Indication: EPILEPSY
     Dosage: UNIT DOSE: 500 MG

REACTIONS (2)
  - CONVULSION [None]
  - HYPOCALCAEMIA [None]
